FAERS Safety Report 4816981-8 (Version None)
Quarter: 2005Q3

REPORT INFORMATION
  Report Type: 
  Country: None (occurrence: None)
  Receive Date: 20050929
  Receipt Date: 20050616
  Transmission Date: 20060218
  Serious: No
  Sender: FDA-Public Use
  Company Number: 05P-163-0303406

PATIENT
  Age: 69 Year
  Sex: Female
  Weight: 72.5755 kg

DRUGS (9)
  1. HUMIRA [Suspect]
     Indication: RHEUMATOID ARTHRITIS
     Dosage: 40 MG, 1 IN 2 WK, SUBCUTANEOUS
     Route: 058
     Dates: start: 20020101
  2. ASPIRIN [Concomitant]
  3. NICOTINIC ACID [Concomitant]
  4. CELECOXIB [Concomitant]
  5. METHOTREXATE SODIUM [Concomitant]
  6. FOLIC ACID [Concomitant]
  7. PANTOPRAZOLE [Concomitant]
  8. BENAZAPRIL HYDROCHLOROTHIAZIDE [Concomitant]
  9. IRBESARTAN [Concomitant]

REACTIONS (2)
  - CYSTITIS [None]
  - MALAISE [None]
